FAERS Safety Report 5846325-4 (Version None)
Quarter: 2008Q3

REPORT INFORMATION
  Report Type: 
  Country: None (occurrence: None)
  Receive Date: 20080815
  Receipt Date: 20080723
  Transmission Date: 20090109
  Serious: No
  Sender: FDA-Public Use
  Company Number: US-BAYER-200829030NA

PATIENT
  Age: 48 Year
  Sex: Female

DRUGS (1)
  1. MAGNEVIST [Suspect]
     Indication: NUCLEAR MAGNETIC RESONANCE IMAGING BRAIN
     Dosage: TOTAL DAILY DOSE: 13 ML  UNIT DOSE: 15 ML
     Route: 042
     Dates: start: 20080723, end: 20080723

REACTIONS (4)
  - ERYTHEMA [None]
  - HYPOAESTHESIA [None]
  - OROPHARYNGEAL DISCOMFORT [None]
  - PARAESTHESIA [None]
